FAERS Safety Report 4761306-X (Version None)
Quarter: 2005Q3

REPORT INFORMATION
  Report Type: 
  Country: None (occurrence: None)
  Receive Date: 20050901
  Receipt Date: 20050901
  Transmission Date: 20060218
  Serious: Yes (Hospitalization)
  Sender: FDA-Public Use
  Company Number: None

PATIENT
  Sex: Male

DRUGS (2)
  1. GLEEVEC [Suspect]
     Indication: PANCREATIC CARCINOMA
     Dosage: 300 MG    DAYS 1-14   PO
     Route: 048
     Dates: start: 20050429, end: 20050512
  2. GEMCITABINE      800 MG/M2 [Suspect]
     Indication: PANCREATIC CARCINOMA
     Dosage: 1592 MG   DAYS 1 AND 8   IV
     Route: 042
     Dates: start: 20050429, end: 20050506

REACTIONS (2)
  - INFECTION [None]
  - MEDICAL DEVICE COMPLICATION [None]
